FAERS Safety Report 5255691-2 (Version None)
Quarter: 2007Q1

REPORT INFORMATION
  Report Type: 
  Country: None (occurrence: None)
  Receive Date: 20070305
  Receipt Date: 20070222
  Transmission Date: 20070707
  Serious: Yes (Disabling, Other)
  Sender: FDA-Public Use
  Company Number: JP-PFIZER INC-2007011365

PATIENT
  Age: 69 Year
  Sex: Female

DRUGS (1)
  1. EPIRUBICIN HYDROCHLORIDE [Suspect]
     Indication: BLADDER CANCER
     Dosage: DAILY DOSE:30MG

REACTIONS (1)
  - PERONEAL NERVE PALSY [None]
